FAERS Safety Report 16630294 (Version 3)
Quarter: 2019Q3

REPORT INFORMATION
  Report Type: Report from Study
  Country: DE (occurrence: DE)
  Receive Date: 20190725
  Receipt Date: 20190930
  Transmission Date: 20191004
  Serious: Yes (Hospitalization, Other)
  Sender: FDA-Public Use
  Company Number: DE-PURDUE PHARMA-GBR-2019-0068421

PATIENT
  Sex: Female
  Weight: 61 kg

DRUGS (3)
  1. MORPHINE SULFATE. [Suspect]
     Active Substance: MORPHINE SULFATE
     Dosage: ONCE IN THE MORNING, ONCE IN THE EVENING30 OT, BID 2
     Route: 048
     Dates: start: 201903, end: 20190620
  2. MORPHINE SULFATE. [Suspect]
     Active Substance: MORPHINE SULFATE
     Indication: BONE PAIN
     Dosage: 10 OT, ONCE IN THE MORNING, TWICE IN THE NOON, ONCE IN THE EVENING
     Route: 048
     Dates: start: 201903, end: 20190620
  3. LETROZOLE. [Suspect]
     Active Substance: LETROZOLE
     Indication: BREAST CANCER METASTATIC
     Dosage: 2.5 MG, DAILY
     Route: 048
     Dates: start: 20190307

REACTIONS (5)
  - Leukopenia [Recovered/Resolved]
  - Nausea [Recovered/Resolved]
  - Leukopenia [Not Recovered/Not Resolved]
  - Neutrophil count decreased [Recovered/Resolved]
  - Nausea [Recovered/Resolved]

NARRATIVE: CASE EVENT DATE: 20190420
